FAERS Safety Report 17979834 (Version 3)
Quarter: 2025Q2

REPORT INFORMATION
  Report Type: Spontaneous
  Country: FR (occurrence: FR)
  Receive Date: 20200703
  Receipt Date: 20250624
  Transmission Date: 20250716
  Serious: Yes (Hospitalization)
  Sender: MYLAN
  Company Number: None

PATIENT
  Age: 69 Year
  Sex: Female
  Weight: 64.5 kg

DRUGS (132)
  1. LANSOPRAZOLE [Suspect]
     Active Substance: LANSOPRAZOLE
     Indication: Product used for unknown indication
     Dosage: 4 DOSAGE FORM, QD
     Dates: start: 20200405, end: 20200406
  2. LANSOPRAZOLE [Suspect]
     Active Substance: LANSOPRAZOLE
     Dosage: 4 DOSAGE FORM, QD
     Route: 048
     Dates: start: 20200405, end: 20200406
  3. LANSOPRAZOLE [Suspect]
     Active Substance: LANSOPRAZOLE
     Dosage: 4 DOSAGE FORM, QD
     Route: 048
     Dates: start: 20200405, end: 20200406
  4. LANSOPRAZOLE [Suspect]
     Active Substance: LANSOPRAZOLE
     Dosage: 4 DOSAGE FORM, QD
     Dates: start: 20200405, end: 20200406
  5. AZITHROMYCIN [Suspect]
     Active Substance: AZITHROMYCIN
     Indication: Coronavirus infection
     Dates: start: 20200411, end: 20200430
  6. AZITHROMYCIN [Suspect]
     Active Substance: AZITHROMYCIN
     Dates: start: 20200411, end: 20200430
  7. AZITHROMYCIN [Suspect]
     Active Substance: AZITHROMYCIN
     Route: 048
     Dates: start: 20200411, end: 20200430
  8. AZITHROMYCIN [Suspect]
     Active Substance: AZITHROMYCIN
     Route: 048
     Dates: start: 20200411, end: 20200430
  9. AZITHROMYCIN [Suspect]
     Active Substance: AZITHROMYCIN
     Dosage: 250 MILLIGRAM, QD
     Dates: start: 20200411, end: 20200423
  10. AZITHROMYCIN [Suspect]
     Active Substance: AZITHROMYCIN
     Dosage: 250 MILLIGRAM, QD
     Dates: start: 20200411, end: 20200423
  11. AZITHROMYCIN [Suspect]
     Active Substance: AZITHROMYCIN
     Dosage: 250 MILLIGRAM, QD
     Route: 048
     Dates: start: 20200411, end: 20200423
  12. AZITHROMYCIN [Suspect]
     Active Substance: AZITHROMYCIN
     Dosage: 250 MILLIGRAM, QD
     Route: 048
     Dates: start: 20200411, end: 20200423
  13. CHOLECALCIFEROL [Suspect]
     Active Substance: CHOLECALCIFEROL
     Indication: Vitamin supplementation
     Dates: start: 20200430, end: 20200513
  14. CHOLECALCIFEROL [Suspect]
     Active Substance: CHOLECALCIFEROL
     Dates: start: 20200430, end: 20200513
  15. CHOLECALCIFEROL [Suspect]
     Active Substance: CHOLECALCIFEROL
     Route: 048
     Dates: start: 20200430, end: 20200513
  16. CHOLECALCIFEROL [Suspect]
     Active Substance: CHOLECALCIFEROL
     Route: 048
     Dates: start: 20200430, end: 20200513
  17. CHOLECALCIFEROL [Suspect]
     Active Substance: CHOLECALCIFEROL
     Dosage: 1 DOSAGE FORM, MONTHLY
     Dates: end: 20200513
  18. CHOLECALCIFEROL [Suspect]
     Active Substance: CHOLECALCIFEROL
     Dosage: 1 DOSAGE FORM, MONTHLY
     Dates: end: 20200513
  19. CHOLECALCIFEROL [Suspect]
     Active Substance: CHOLECALCIFEROL
     Dosage: 1 DOSAGE FORM, MONTHLY
     Route: 048
     Dates: end: 20200513
  20. CHOLECALCIFEROL [Suspect]
     Active Substance: CHOLECALCIFEROL
     Dosage: 1 DOSAGE FORM, MONTHLY
     Route: 048
     Dates: end: 20200513
  21. ALLOPURINOL [Suspect]
     Active Substance: ALLOPURINOL
     Indication: Gout
     Dosage: 300 MILLIGRAM, QD
     Dates: end: 20200518
  22. ALLOPURINOL [Suspect]
     Active Substance: ALLOPURINOL
     Dosage: 300 MILLIGRAM, QD
     Dates: end: 20200518
  23. ALLOPURINOL [Suspect]
     Active Substance: ALLOPURINOL
     Dosage: 300 MILLIGRAM, QD
     Route: 048
     Dates: end: 20200518
  24. ALLOPURINOL [Suspect]
     Active Substance: ALLOPURINOL
     Dosage: 300 MILLIGRAM, QD
     Route: 048
     Dates: end: 20200518
  25. ALLOPURINOL [Suspect]
     Active Substance: ALLOPURINOL
     Dosage: 300 MILLIGRAM, QD
     Dates: end: 20200518
  26. ALLOPURINOL [Suspect]
     Active Substance: ALLOPURINOL
     Dosage: 300 MILLIGRAM, QD
     Dates: end: 20200518
  27. ALLOPURINOL [Suspect]
     Active Substance: ALLOPURINOL
     Dosage: 300 MILLIGRAM, QD
     Route: 048
     Dates: end: 20200518
  28. ALLOPURINOL [Suspect]
     Active Substance: ALLOPURINOL
     Dosage: 300 MILLIGRAM, QD
     Route: 048
     Dates: end: 20200518
  29. FOLIC ACID [Suspect]
     Active Substance: FOLIC ACID
     Indication: Vitamin supplementation
     Dosage: 5 MILLIGRAM, QD
     Dates: start: 20200218, end: 20200430
  30. FOLIC ACID [Suspect]
     Active Substance: FOLIC ACID
     Dosage: 5 MILLIGRAM, QD
     Route: 048
     Dates: start: 20200218, end: 20200430
  31. FOLIC ACID [Suspect]
     Active Substance: FOLIC ACID
     Dosage: 5 MILLIGRAM, QD
     Route: 048
     Dates: start: 20200218, end: 20200430
  32. FOLIC ACID [Suspect]
     Active Substance: FOLIC ACID
     Dosage: 5 MILLIGRAM, QD
     Dates: start: 20200218, end: 20200430
  33. ATENOLOL [Suspect]
     Active Substance: ATENOLOL
     Indication: Hypertension
     Dosage: 50 MILLIGRAM, QD
     Dates: end: 20200709
  34. ATENOLOL [Suspect]
     Active Substance: ATENOLOL
     Dosage: 50 MILLIGRAM, QD
     Route: 048
     Dates: end: 20200709
  35. ATENOLOL [Suspect]
     Active Substance: ATENOLOL
     Dosage: 50 MILLIGRAM, QD
     Route: 048
     Dates: end: 20200709
  36. ATENOLOL [Suspect]
     Active Substance: ATENOLOL
     Dosage: 50 MILLIGRAM, QD
     Dates: end: 20200709
  37. PREDNISONE [Suspect]
     Active Substance: PREDNISONE
     Indication: Renal transplant
     Dosage: 7.5 MILLIGRAM, QD
  38. PREDNISONE [Suspect]
     Active Substance: PREDNISONE
     Dosage: 7.5 MILLIGRAM, QD
     Route: 048
  39. PREDNISONE [Suspect]
     Active Substance: PREDNISONE
     Dosage: 7.5 MILLIGRAM, QD
     Route: 048
  40. PREDNISONE [Suspect]
     Active Substance: PREDNISONE
     Dosage: 7.5 MILLIGRAM, QD
  41. PLAQUENIL [Suspect]
     Active Substance: HYDROXYCHLOROQUINE SULFATE
     Indication: Coronavirus infection
     Dates: start: 20200411, end: 20200430
  42. PLAQUENIL [Suspect]
     Active Substance: HYDROXYCHLOROQUINE SULFATE
     Dates: start: 20200411, end: 20200430
  43. PLAQUENIL [Suspect]
     Active Substance: HYDROXYCHLOROQUINE SULFATE
     Route: 048
     Dates: start: 20200411, end: 20200430
  44. PLAQUENIL [Suspect]
     Active Substance: HYDROXYCHLOROQUINE SULFATE
     Route: 048
     Dates: start: 20200411, end: 20200430
  45. PLAQUENIL [Suspect]
     Active Substance: HYDROXYCHLOROQUINE SULFATE
     Dosage: 400 MILLIGRAM, QD
     Dates: start: 20200411, end: 20200423
  46. PLAQUENIL [Suspect]
     Active Substance: HYDROXYCHLOROQUINE SULFATE
     Dosage: 400 MILLIGRAM, QD
     Dates: start: 20200411, end: 20200423
  47. PLAQUENIL [Suspect]
     Active Substance: HYDROXYCHLOROQUINE SULFATE
     Dosage: 400 MILLIGRAM, QD
     Route: 048
     Dates: start: 20200411, end: 20200423
  48. PLAQUENIL [Suspect]
     Active Substance: HYDROXYCHLOROQUINE SULFATE
     Dosage: 400 MILLIGRAM, QD
     Route: 048
     Dates: start: 20200411, end: 20200423
  49. SPIRAMYCIN [Suspect]
     Active Substance: SPIRAMYCIN
     Indication: Lung disorder
     Dosage: 1 DOSAGE FORM, BID
     Dates: start: 20200405, end: 20200406
  50. SPIRAMYCIN [Suspect]
     Active Substance: SPIRAMYCIN
     Dosage: 1 DOSAGE FORM, BID
     Route: 042
     Dates: start: 20200405, end: 20200406
  51. SPIRAMYCIN [Suspect]
     Active Substance: SPIRAMYCIN
     Dosage: 1 DOSAGE FORM, BID
     Route: 042
     Dates: start: 20200405, end: 20200406
  52. SPIRAMYCIN [Suspect]
     Active Substance: SPIRAMYCIN
     Dosage: 1 DOSAGE FORM, BID
     Dates: start: 20200405, end: 20200406
  53. BACTRIM [Suspect]
     Active Substance: SULFAMETHOXAZOLE\TRIMETHOPRIM
     Indication: Lung disorder
     Dosage: 3 DOSAGE FORM, BID
     Dates: start: 20200406, end: 20200407
  54. BACTRIM [Suspect]
     Active Substance: SULFAMETHOXAZOLE\TRIMETHOPRIM
     Dosage: 3 DOSAGE FORM, BID
     Route: 042
     Dates: start: 20200406, end: 20200407
  55. BACTRIM [Suspect]
     Active Substance: SULFAMETHOXAZOLE\TRIMETHOPRIM
     Dosage: 3 DOSAGE FORM, BID
     Route: 042
     Dates: start: 20200406, end: 20200407
  56. BACTRIM [Suspect]
     Active Substance: SULFAMETHOXAZOLE\TRIMETHOPRIM
     Dosage: 3 DOSAGE FORM, BID
     Dates: start: 20200406, end: 20200407
  57. CEFEPIME [Suspect]
     Active Substance: CEFEPIME HYDROCHLORIDE
     Indication: Lung disorder
     Dosage: 1 GRAM, QD
     Dates: start: 20200405, end: 20200406
  58. CEFEPIME [Suspect]
     Active Substance: CEFEPIME HYDROCHLORIDE
     Dosage: 1 GRAM, QD
     Route: 042
     Dates: start: 20200405, end: 20200406
  59. CEFEPIME [Suspect]
     Active Substance: CEFEPIME HYDROCHLORIDE
     Dosage: 1 GRAM, QD
     Route: 042
     Dates: start: 20200405, end: 20200406
  60. CEFEPIME [Suspect]
     Active Substance: CEFEPIME HYDROCHLORIDE
     Dosage: 1 GRAM, QD
     Dates: start: 20200405, end: 20200406
  61. CALCIPARINE [Suspect]
     Active Substance: HEPARIN CALCIUM
     Indication: Vascular disorder prophylaxis
     Dosage: 1000 INTERNATIONAL UNIT, QD
     Dates: start: 20200405, end: 20200406
  62. CALCIPARINE [Suspect]
     Active Substance: HEPARIN CALCIUM
     Dosage: 1000 INTERNATIONAL UNIT, QD
     Dates: start: 20200405, end: 20200406
  63. CALCIPARINE [Suspect]
     Active Substance: HEPARIN CALCIUM
     Dosage: 1000 INTERNATIONAL UNIT, QD
     Route: 058
     Dates: start: 20200405, end: 20200406
  64. CALCIPARINE [Suspect]
     Active Substance: HEPARIN CALCIUM
     Dosage: 1000 INTERNATIONAL UNIT, QD
     Route: 058
     Dates: start: 20200405, end: 20200406
  65. CALCIPARINE [Suspect]
     Active Substance: HEPARIN CALCIUM
     Dosage: 10000 INTERNATIONAL UNIT, QD
     Dates: start: 20200405, end: 20200406
  66. CALCIPARINE [Suspect]
     Active Substance: HEPARIN CALCIUM
     Dosage: 10000 INTERNATIONAL UNIT, QD
     Dates: start: 20200405, end: 20200406
  67. CALCIPARINE [Suspect]
     Active Substance: HEPARIN CALCIUM
     Dosage: 10000 INTERNATIONAL UNIT, QD
     Route: 058
     Dates: start: 20200405, end: 20200406
  68. CALCIPARINE [Suspect]
     Active Substance: HEPARIN CALCIUM
     Dosage: 10000 INTERNATIONAL UNIT, QD
     Route: 058
     Dates: start: 20200405, end: 20200406
  69. ATORVASTATIN CALCIUM [Concomitant]
     Active Substance: ATORVASTATIN CALCIUM
     Indication: Prophylaxis
     Dosage: 20 MG, DAILY
     Dates: end: 20200519
  70. ATORVASTATIN CALCIUM [Concomitant]
     Active Substance: ATORVASTATIN CALCIUM
     Dosage: 20 MG, DAILY
     Route: 048
     Dates: end: 20200519
  71. ATORVASTATIN CALCIUM [Concomitant]
     Active Substance: ATORVASTATIN CALCIUM
     Dosage: 20 MG, DAILY
     Route: 048
     Dates: end: 20200519
  72. ATORVASTATIN CALCIUM [Concomitant]
     Active Substance: ATORVASTATIN CALCIUM
     Dosage: 20 MG, DAILY
     Dates: end: 20200519
  73. FLECAINIDE [Concomitant]
     Active Substance: FLECAINIDE
     Indication: Product used for unknown indication
     Dosage: 100 MILLIGRAM, QD
  74. FLECAINIDE [Concomitant]
     Active Substance: FLECAINIDE
     Dosage: 100 MILLIGRAM, QD
  75. FLECAINIDE [Concomitant]
     Active Substance: FLECAINIDE
     Dosage: 100 MILLIGRAM, QD
     Route: 048
  76. FLECAINIDE [Concomitant]
     Active Substance: FLECAINIDE
     Dosage: 100 MILLIGRAM, QD
     Route: 048
  77. FLECAINIDE [Concomitant]
     Active Substance: FLECAINIDE
  78. FLECAINIDE [Concomitant]
     Active Substance: FLECAINIDE
  79. FLECAINIDE [Concomitant]
     Active Substance: FLECAINIDE
     Route: 065
  80. FLECAINIDE [Concomitant]
     Active Substance: FLECAINIDE
     Route: 065
  81. TACROLIMUS [Concomitant]
     Active Substance: TACROLIMUS
     Indication: Renal transplant
     Dosage: 1 DOSAGE FORM, QD
  82. TACROLIMUS [Concomitant]
     Active Substance: TACROLIMUS
     Dosage: 1 DOSAGE FORM, QD
  83. TACROLIMUS [Concomitant]
     Active Substance: TACROLIMUS
     Dosage: 1 DOSAGE FORM, QD
     Route: 048
  84. TACROLIMUS [Concomitant]
     Active Substance: TACROLIMUS
     Dosage: 1 DOSAGE FORM, QD
     Route: 048
  85. TACROLIMUS [Concomitant]
     Active Substance: TACROLIMUS
  86. TACROLIMUS [Concomitant]
     Active Substance: TACROLIMUS
  87. TACROLIMUS [Concomitant]
     Active Substance: TACROLIMUS
     Route: 065
  88. TACROLIMUS [Concomitant]
     Active Substance: TACROLIMUS
     Route: 065
  89. FUROSEMIDE [Concomitant]
     Active Substance: FUROSEMIDE
     Indication: Hypertension
     Dosage: 120 MILLIGRAM, QD
  90. FUROSEMIDE [Concomitant]
     Active Substance: FUROSEMIDE
     Dosage: 120 MILLIGRAM, QD
  91. FUROSEMIDE [Concomitant]
     Active Substance: FUROSEMIDE
     Dosage: 120 MILLIGRAM, QD
     Route: 048
  92. FUROSEMIDE [Concomitant]
     Active Substance: FUROSEMIDE
     Dosage: 120 MILLIGRAM, QD
     Route: 048
  93. FUROSEMIDE [Concomitant]
     Active Substance: FUROSEMIDE
  94. FUROSEMIDE [Concomitant]
     Active Substance: FUROSEMIDE
  95. FUROSEMIDE [Concomitant]
     Active Substance: FUROSEMIDE
     Route: 065
  96. FUROSEMIDE [Concomitant]
     Active Substance: FUROSEMIDE
     Route: 065
  97. NICARDIPINE HYDROCHLORIDE [Concomitant]
     Active Substance: NICARDIPINE HYDROCHLORIDE
     Indication: Hypertension
     Dosage: 100 MILLIGRAM, QD
  98. NICARDIPINE HYDROCHLORIDE [Concomitant]
     Active Substance: NICARDIPINE HYDROCHLORIDE
     Dosage: 100 MILLIGRAM, QD
  99. NICARDIPINE HYDROCHLORIDE [Concomitant]
     Active Substance: NICARDIPINE HYDROCHLORIDE
     Dosage: 100 MILLIGRAM, QD
     Route: 048
  100. NICARDIPINE HYDROCHLORIDE [Concomitant]
     Active Substance: NICARDIPINE HYDROCHLORIDE
     Dosage: 100 MILLIGRAM, QD
     Route: 048
  101. NICARDIPINE HYDROCHLORIDE [Concomitant]
     Active Substance: NICARDIPINE HYDROCHLORIDE
  102. NICARDIPINE HYDROCHLORIDE [Concomitant]
     Active Substance: NICARDIPINE HYDROCHLORIDE
  103. NICARDIPINE HYDROCHLORIDE [Concomitant]
     Active Substance: NICARDIPINE HYDROCHLORIDE
     Route: 065
  104. NICARDIPINE HYDROCHLORIDE [Concomitant]
     Active Substance: NICARDIPINE HYDROCHLORIDE
     Route: 065
  105. NOVORAPID [Concomitant]
     Active Substance: INSULIN ASPART
     Indication: Type 2 diabetes mellitus
  106. NOVORAPID [Concomitant]
     Active Substance: INSULIN ASPART
  107. NOVORAPID [Concomitant]
     Active Substance: INSULIN ASPART
     Route: 058
  108. NOVORAPID [Concomitant]
     Active Substance: INSULIN ASPART
     Route: 058
  109. NOVORAPID [Concomitant]
     Active Substance: INSULIN ASPART
  110. NOVORAPID [Concomitant]
     Active Substance: INSULIN ASPART
  111. NOVORAPID [Concomitant]
     Active Substance: INSULIN ASPART
     Route: 065
  112. NOVORAPID [Concomitant]
     Active Substance: INSULIN ASPART
     Route: 065
  113. PREDNISONE [Concomitant]
     Active Substance: PREDNISONE
  114. PREDNISONE [Concomitant]
     Active Substance: PREDNISONE
     Route: 065
  115. PREDNISONE [Concomitant]
     Active Substance: PREDNISONE
     Route: 065
  116. PREDNISONE [Concomitant]
     Active Substance: PREDNISONE
  117. LANTUS [Concomitant]
     Active Substance: INSULIN GLARGINE
     Indication: Type 2 diabetes mellitus
  118. LANTUS [Concomitant]
     Active Substance: INSULIN GLARGINE
  119. LANTUS [Concomitant]
     Active Substance: INSULIN GLARGINE
     Route: 058
  120. LANTUS [Concomitant]
     Active Substance: INSULIN GLARGINE
     Route: 058
  121. LANTUS [Concomitant]
     Active Substance: INSULIN GLARGINE
  122. LANTUS [Concomitant]
     Active Substance: INSULIN GLARGINE
  123. LANTUS [Concomitant]
     Active Substance: INSULIN GLARGINE
     Route: 065
  124. LANTUS [Concomitant]
     Active Substance: INSULIN GLARGINE
     Route: 065
  125. ARANESP [Concomitant]
     Active Substance: DARBEPOETIN ALFA
     Indication: Anaemia
     Dosage: 40 MICROGRAM, QW
     Dates: start: 202004, end: 20200518
  126. ARANESP [Concomitant]
     Active Substance: DARBEPOETIN ALFA
     Dosage: 40 MICROGRAM, QW
     Dates: start: 202004, end: 20200518
  127. ARANESP [Concomitant]
     Active Substance: DARBEPOETIN ALFA
     Dosage: 40 MICROGRAM, QW
     Route: 058
     Dates: start: 202004, end: 20200518
  128. ARANESP [Concomitant]
     Active Substance: DARBEPOETIN ALFA
     Dosage: 40 MICROGRAM, QW
     Route: 058
     Dates: start: 202004, end: 20200518
  129. ARANESP [Concomitant]
     Active Substance: DARBEPOETIN ALFA
  130. ARANESP [Concomitant]
     Active Substance: DARBEPOETIN ALFA
  131. ARANESP [Concomitant]
     Active Substance: DARBEPOETIN ALFA
     Route: 065
  132. ARANESP [Concomitant]
     Active Substance: DARBEPOETIN ALFA
     Route: 065

REACTIONS (4)
  - Cholestasis [Recovered/Resolved]
  - Hepatic cytolysis [Recovered/Resolved]
  - Rash pustular [Recovered/Resolved]
  - Off label use [Unknown]

NARRATIVE: CASE EVENT DATE: 20200411
